FAERS Safety Report 20033685 (Version 1)
Quarter: 2021Q4

REPORT INFORMATION
  Report Type: Other
  Country: DE (occurrence: DE)
  Receive Date: 20211104
  Receipt Date: 20211104
  Transmission Date: 20220303
  Serious: Yes (Other)
  Sender: FDA-Public Use
  Company Number: DE-DCGMA-21193891

PATIENT
  Age: 65 Year
  Sex: Female
  Weight: 52 kg

DRUGS (10)
  1. OLANZAPINE [Suspect]
     Active Substance: OLANZAPINE
     Indication: Product used for unknown indication
     Dosage: 10-20 MG 2-3 PER DAY
     Route: 048
     Dates: start: 20210908
  2. LORAZEPAM [Suspect]
     Active Substance: LORAZEPAM
     Indication: Product used for unknown indication
     Dosage: UNK
     Route: 065
  3. RISPERIDONE [Suspect]
     Active Substance: RISPERIDONE
     Indication: Product used for unknown indication
     Dosage: UNK
     Route: 065
     Dates: start: 20210905
  4. TAVOR (LORAZEPAM) [Suspect]
     Active Substance: LORAZEPAM
     Indication: Product used for unknown indication
     Dosage: 1.5 MILLIGRAM, QD,EVERY DAYS 3 SEPARATED DOSES
     Route: 065
     Dates: start: 20210908
  5. VALPROATE SODIUM [Suspect]
     Active Substance: VALPROATE SODIUM
     Indication: Product used for unknown indication
     Dosage: UNK
     Route: 065
  6. SIMVASTATIN [Concomitant]
     Active Substance: SIMVASTATIN
     Indication: Product used for unknown indication
     Route: 065
  7. ACETAMINOPHEN [Concomitant]
     Active Substance: ACETAMINOPHEN
     Indication: Product used for unknown indication
     Dosage: 500 MILLIGRAM, PRN
     Route: 065
  8. IBUPROFEN [Concomitant]
     Active Substance: IBUPROFEN
     Indication: Product used for unknown indication
     Dosage: UNK,400-600 BIS 3X
     Route: 065
  9. PANTOPRAZOLE SODIUM [Concomitant]
     Active Substance: PANTOPRAZOLE SODIUM
     Indication: Product used for unknown indication
     Dosage: UNK
     Route: 065
  10. ASPIRIN [Concomitant]
     Active Substance: ASPIRIN
     Indication: Product used for unknown indication
     Dosage: 5 MILLIGRAM
     Route: 065

REACTIONS (23)
  - Head discomfort [Unknown]
  - Visual impairment [Unknown]
  - Food craving [Unknown]
  - Hyperhidrosis [Unknown]
  - Asthenia [Unknown]
  - Headache [Unknown]
  - Overdose [Unknown]
  - Paraesthesia [Unknown]
  - Ataxia [Unknown]
  - Muscle twitching [Unknown]
  - Dizziness [Unknown]
  - Hypotonia [Unknown]
  - Polyuria [Unknown]
  - Abdominal pain [Unknown]
  - Pain in extremity [Unknown]
  - Gait disturbance [Unknown]
  - Diarrhoea [Unknown]
  - Fatigue [Unknown]
  - Ventricular extrasystoles [Recovered/Resolved]
  - Musculoskeletal stiffness [Unknown]
  - Ventricular arrhythmia [Unknown]
  - Somnolence [Not Recovered/Not Resolved]
  - Psychomotor retardation [Not Recovered/Not Resolved]

NARRATIVE: CASE EVENT DATE: 20210423
